FAERS Safety Report 9690934 (Version 3)
Quarter: 2014Q2

REPORT INFORMATION
  Report Type: Spontaneous
  Country: AR (occurrence: AR)
  Receive Date: 20131115
  Receipt Date: 20140619
  Transmission Date: 20141212
  Serious: Yes (Hospitalization, Other)
  Sender: FDA-Public Use
  Company Number: AR-PFIZER INC-2013324893

PATIENT
  Age: 7 Year
  Sex: Male

DRUGS (4)
  1. GENOTROPIN [Suspect]
     Indication: GROWTH HORMONE DEFICIENCY
     Dosage: 0.6 MG TO1 MG, 1X/DAY
     Route: 058
     Dates: start: 20130606, end: 20130923
  2. DESMOPRESSIN [Concomitant]
     Route: 045
  3. HYDROCORTISONE [Concomitant]
     Dosage: UNK
     Route: 048
     Dates: start: 20110823
  4. LEVOTHYROXINE [Concomitant]
     Dosage: UNK
     Route: 048
     Dates: start: 20110823

REACTIONS (3)
  - Cerebrovascular accident [Recovering/Resolving]
  - Paralysis [Recovering/Resolving]
  - Aphasia [Recovering/Resolving]
